FAERS Safety Report 8000166-0 (Version None)
Quarter: 2011Q4

REPORT INFORMATION
  Report Type: 
  Country: None (occurrence: None)
  Receive Date: 20111220
  Receipt Date: 20111220
  Transmission Date: 20120403
  Serious: Yes (Hospitalization)
  Sender: FDA-Public Use
  Company Number: None

PATIENT
  Sex: Female
  Weight: 72 kg

DRUGS (2)
  1. CARBOPLATIN [Suspect]
     Dosage: 572 MG
     Dates: end: 20111121
  2. TAXOL [Suspect]
     Dosage: 136 MG
     Dates: end: 20111121

REACTIONS (9)
  - REFUSAL OF TREATMENT BY PATIENT [None]
  - DILATATION VENTRICULAR [None]
  - TACHYPNOEA [None]
  - ASTHENIA [None]
  - PULMONARY EMBOLISM [None]
  - OXYGEN SATURATION DECREASED [None]
  - PULMONARY HYPERTENSION [None]
  - ELECTROCARDIOGRAM T WAVE INVERSION [None]
  - DEEP VEIN THROMBOSIS [None]
